FAERS Safety Report 21082799 (Version 5)
Quarter: 2022Q3

REPORT INFORMATION
  Report Type: Report from Study
  Country: CH (occurrence: CH)
  Receive Date: 20220714
  Receipt Date: 20220818
  Transmission Date: 20221026
  Serious: Yes (Hospitalization)
  Sender: FDA-Public Use
  Company Number: CH-ABBVIE-22K-151-4459847-00

PATIENT
  Age: 78 Year
  Sex: Male
  Weight: 66 kg

DRUGS (5)
  1. CARBIDOPA\LEVODOPA [Suspect]
     Active Substance: CARBIDOPA\LEVODOPA
     Indication: Parkinson^s disease
     Route: 050
     Dates: start: 20211015
  2. CARBIDOPA\LEVODOPA [Suspect]
     Active Substance: CARBIDOPA\LEVODOPA
     Dosage: 24H THERAPY, MD: 7.0 ML, CRD: 6.2 ML/H, CRN: 3.8 ML/H, ED: 2.0 ML
     Route: 050
     Dates: start: 20220303, end: 20220707
  3. CARBIDOPA\LEVODOPA [Suspect]
     Active Substance: CARBIDOPA\LEVODOPA
     Dosage: 24H THERAPY, MD: 7.0 ML, CRD: 6.2 ML/H, CRN: 3.8 ML/H, ED: 2.0 ML
     Route: 050
     Dates: start: 20220707, end: 20220715
  4. CARBIDOPA\LEVODOPA [Suspect]
     Active Substance: CARBIDOPA\LEVODOPA
     Dosage: 24H THERAPY MD: 7 ML, CRD: 6.4 ML/H, CRN: 4 ML/H, ED: 2 ML
     Route: 050
     Dates: start: 20220715, end: 20220719
  5. CARBIDOPA\LEVODOPA [Suspect]
     Active Substance: CARBIDOPA\LEVODOPA
     Dosage: MD: 7 ML, CRD: 6.2 ML/H, CRN: 3.8 ML/H, ED: 2 ML?FREQUENCY: 24H THERAPY, DOSAGE DECREASED
     Route: 050
     Dates: start: 20220719

REACTIONS (6)
  - Device dislocation [Recovered/Resolved]
  - Device issue [Recovered/Resolved]
  - Malaise [Unknown]
  - Akinesia [Recovered/Resolved]
  - Agitation [Unknown]
  - Enteral nutrition [Unknown]

NARRATIVE: CASE EVENT DATE: 20220701
